FAERS Safety Report 24242786 (Version 1)
Quarter: 2024Q3

REPORT INFORMATION
  Report Type: Spontaneous
  Country: CZ (occurrence: CZ)
  Receive Date: 20240823
  Receipt Date: 20240823
  Transmission Date: 20241016
  Serious: Yes (Other)
  Sender: TEVA
  Company Number: CZ-TEVA-VS-3234865

PATIENT
  Age: 75 Year
  Sex: Female

DRUGS (4)
  1. PACLITAXEL [Suspect]
     Active Substance: PACLITAXEL
     Indication: Adjuvant therapy
     Dosage: 12X PACLITAXEL EVERY WEEK
     Route: 065
     Dates: start: 202205, end: 202210
  2. ANASTROZOLE [Concomitant]
     Active Substance: ANASTROZOLE
     Indication: Neoadjuvant therapy
     Dates: start: 202111
  3. DOXORUBICIN [Concomitant]
     Active Substance: DOXORUBICIN
     Indication: Adjuvant therapy
     Dosage: 4X DOXORUBICIN
     Dates: start: 202205, end: 202210
  4. CYCLOPHOSPHAMIDE [Concomitant]
     Active Substance: CYCLOPHOSPHAMIDE
     Indication: Adjuvant therapy
     Dates: start: 202205, end: 202210

REACTIONS (1)
  - Haematotoxicity [Not Recovered/Not Resolved]
